FAERS Safety Report 17785136 (Version 2)
Quarter: 2020Q2

REPORT INFORMATION
  Report Type: Spontaneous
  Country: DK (occurrence: DK)
  Receive Date: 20200514
  Receipt Date: 20200528
  Transmission Date: 20200714
  Serious: Yes (Hospitalization)
  Sender: FDA-Public Use
  Company Number: DK-MEITHEAL PHARMACEUTICALS-2020MHL00014

PATIENT
  Age: 67 Year
  Sex: Female
  Weight: 84.1 kg

DRUGS (2)
  1. CARBOPLATIN. [Suspect]
     Active Substance: CARBOPLATIN
     Indication: SQUAMOUS CELL CARCINOMA
     Dosage: UNK UNK, 1X/WEEK
     Route: 042
     Dates: start: 20190205, end: 20200227
  2. NIMORAZOLE [Concomitant]
     Active Substance: NIMORAZOLE
     Dosage: 66GY 33F
     Route: 065
     Dates: start: 20190205

REACTIONS (2)
  - Deep vein thrombosis [Recovered/Resolved]
  - Necrosis [Recovered/Resolved]

NARRATIVE: CASE EVENT DATE: 2019
